FAERS Safety Report 15768754 (Version 2)
Quarter: 2019Q1

REPORT INFORMATION
  Report Type: Report from Study
  Country: None (occurrence: US)
  Receive Date: 20181228
  Receipt Date: 20190222
  Transmission Date: 20190417
  Serious: Yes (Other)
  Sender: FDA-Public Use
  Company Number: US-ABBVIE-18K-163-2601847-00

PATIENT
  Age: 47 Year
  Sex: Male

DRUGS (8)
  1. METOPROLOL. [Concomitant]
     Active Substance: METOPROLOL
     Indication: PRODUCT USED FOR UNKNOWN INDICATION
  2. IBUPROFEN. [Concomitant]
     Active Substance: IBUPROFEN
     Indication: PRODUCT USED FOR UNKNOWN INDICATION
  3. BACLOFEN. [Concomitant]
     Active Substance: BACLOFEN
     Indication: PRODUCT USED FOR UNKNOWN INDICATION
  4. MAVYRET [Suspect]
     Active Substance: GLECAPREVIR\PIBRENTASVIR
     Indication: CHRONIC HEPATITIS C
     Route: 048
     Dates: start: 201811, end: 201811
  5. DEXILANT [Concomitant]
     Active Substance: DEXLANSOPRAZOLE
     Indication: PRODUCT USED FOR UNKNOWN INDICATION
  6. XANAX [Concomitant]
     Active Substance: ALPRAZOLAM
     Indication: PRODUCT USED FOR UNKNOWN INDICATION
  7. ASPIRIN. [Concomitant]
     Active Substance: ASPIRIN
     Indication: PRODUCT USED FOR UNKNOWN INDICATION
  8. OXYCODONE [Concomitant]
     Active Substance: OXYCODONE
     Indication: PRODUCT USED FOR UNKNOWN INDICATION

REACTIONS (32)
  - Social anxiety disorder [Unknown]
  - Paranoia [Recovered/Resolved]
  - Drug ineffective [Unknown]
  - Muscle atrophy [Recovering/Resolving]
  - Lethargy [Unknown]
  - Loss of libido [Unknown]
  - Fatigue [Unknown]
  - Suicidal ideation [Recovered/Resolved]
  - Device breakage [Unknown]
  - Hypophagia [Unknown]
  - Drug intolerance [Unknown]
  - Cyst [Unknown]
  - Disorientation [Recovered/Resolved]
  - Vision blurred [Unknown]
  - Malaise [Unknown]
  - Aggression [Unknown]
  - Mental disorder [Unknown]
  - Depression [Recovering/Resolving]
  - Disturbance in attention [Unknown]
  - Abdominal pain [Unknown]
  - Knee arthroplasty [Unknown]
  - Joint range of motion decreased [Unknown]
  - Arthralgia [Unknown]
  - Fluid intake reduced [Unknown]
  - Homicidal ideation [Recovered/Resolved]
  - Haematemesis [Recovered/Resolved]
  - Haematochezia [Recovered/Resolved]
  - Gait inability [Unknown]
  - Device loosening [Unknown]
  - Anxiety [Recovered/Resolved]
  - Weight decreased [Recovering/Resolving]
  - Anxiety [Unknown]

NARRATIVE: CASE EVENT DATE: 201811
